FAERS Safety Report 13187776 (Version 10)
Quarter: 2019Q4

REPORT INFORMATION
  Report Type: Spontaneous
  Country: US (occurrence: US)
  Receive Date: 20170206
  Receipt Date: 20191226
  Transmission Date: 20200122
  Serious: No
  Sender: FDA-Public Use
  Company Number: US-PFIZER INC-2017051239

PATIENT
  Age: 63 Year
  Sex: Female
  Weight: 54 kg

DRUGS (15)
  1. QVAR REDIHALER [Concomitant]
     Active Substance: BECLOMETHASONE DIPROPIONATE
     Dosage: UNK, 2X/DAY [80MCG/ACT/2 (TWO) PUFF INHALATION TWO TIMES DAILY]
     Dates: start: 20181105
  2. PROAIR HFA [Concomitant]
     Active Substance: ALBUTEROL SULFATE
     Dosage: UNK, AS NEEDED (108 (90 BASE)MCG/ACT/2 (TWO) INHALATION FOUR TIMES DALLY)
     Route: 055
     Dates: start: 20190329
  3. AMOXICILLIN AND CLAVULANATE POTASSIUM [Concomitant]
     Active Substance: AMOXICILLIN\CLAVULANATE POTASSIUM
     Dosage: UNK UNK, 2X/DAY (875-125 MG TABLET, 1 (ONE) ORAL TWO TIMES DAILY)
     Route: 048
     Dates: start: 20191202
  4. CELEBREX [Suspect]
     Active Substance: CELECOXIB
     Indication: MYALGIA
     Dosage: 200 MG, 1X/DAY
     Route: 048
     Dates: start: 20160803
  5. CELEBREX [Suspect]
     Active Substance: CELECOXIB
     Indication: ARTHRITIS
     Dosage: 200 MG, DAILY
     Route: 048
     Dates: start: 20190710
  6. ASPRIN [Suspect]
     Active Substance: ASPIRIN
     Dosage: 600 MG, DAILY
  7. OMEPRAZOLE. [Concomitant]
     Active Substance: OMEPRAZOLE
     Indication: GASTRIC DISORDER
     Dosage: 20 MG, 2X/DAY
     Route: 048
     Dates: start: 20181105
  8. BENZONATATE. [Concomitant]
     Active Substance: BENZONATATE
     Dosage: 200 MG, AS NEEDED ((1 (ONE) ORAL EVERY EIGHT HOURS, AS NEEDED))
     Route: 048
     Dates: start: 20191202
  9. CELEBREX [Suspect]
     Active Substance: CELECOXIB
     Indication: MUSCULOSKELETAL STIFFNESS
     Dosage: 200 MG, 1X/DAY
     Route: 048
     Dates: start: 20180507, end: 201905
  10. CELEBREX [Suspect]
     Active Substance: CELECOXIB
     Indication: ARTHRALGIA
  11. CELEBREX [Suspect]
     Active Substance: CELECOXIB
     Indication: OSTEOARTHRITIS
  12. ASPRIN [Suspect]
     Active Substance: ASPIRIN
     Dosage: 500 MG, AS NEEDED
     Route: 048
  13. ASPRIN [Suspect]
     Active Substance: ASPIRIN
     Indication: PAIN
     Dosage: 3000 MG, DAILY
  14. FLUTICASONE PROPIONATE. [Concomitant]
     Active Substance: FLUTICASONE PROPIONATE
     Dosage: UNK, 2X/DAY [(50MCG/ACT/1 SPRAY NASAL EACH NOSTRIL EVERY 12 HOURS)]
     Route: 045
     Dates: start: 20190425
  15. TYLENOL EXTRA STRENGTH [Concomitant]
     Active Substance: ACETAMINOPHEN
     Dosage: 1-2 AS NEEDED
     Route: 048

REACTIONS (5)
  - Pain [Not Recovered/Not Resolved]
  - Movement disorder [Unknown]
  - Withdrawal syndrome [Not Recovered/Not Resolved]
  - Paraesthesia [Recovered/Resolved]
  - Sinus disorder [Unknown]

NARRATIVE: CASE EVENT DATE: 201701
